FAERS Safety Report 15892368 (Version 1)
Quarter: 2019Q1

REPORT INFORMATION
  Report Type: Report from Study
  Country: US (occurrence: US)
  Receive Date: 20190130
  Receipt Date: 20190130
  Transmission Date: 20190417
  Serious: No
  Sender: FDA-Public Use
  Company Number: US-EXELIXIS-CABO-18014406

PATIENT
  Age: 75 Year
  Sex: Male

DRUGS (3)
  1. CABOMETYX [Suspect]
     Active Substance: CABOZANTINIB S-MALATE
     Indication: METASTATIC RENAL CELL CARCINOMA
     Dosage: 60 MG, QD
     Dates: start: 201802
  2. CABOMETYX [Suspect]
     Active Substance: CABOZANTINIB S-MALATE
     Dosage: 40 MG, QD(PM WITHOUT FOOD)
     Dates: start: 20180611
  3. CABOMETYX [Suspect]
     Active Substance: CABOZANTINIB S-MALATE
     Dosage: 40 MG, QOD

REACTIONS (15)
  - Diarrhoea [Recovering/Resolving]
  - Skin exfoliation [Unknown]
  - Weight decreased [Unknown]
  - Hypotension [Recovered/Resolved]
  - Hypertension [Recovering/Resolving]
  - Protein urine present [Unknown]
  - Blood magnesium decreased [Unknown]
  - Hypothyroidism [Unknown]
  - Nausea [Unknown]
  - Constipation [Unknown]
  - Dysgeusia [Unknown]
  - Pain in extremity [Unknown]
  - Blister [Recovering/Resolving]
  - Blood cholesterol increased [Unknown]
  - Skin erosion [Unknown]

NARRATIVE: CASE EVENT DATE: 201802
